FAERS Safety Report 6752586-X (Version None)
Quarter: 2010Q2

REPORT INFORMATION
  Report Type: 
  Country: None (occurrence: None)
  Receive Date: 20100602
  Receipt Date: 20100526
  Transmission Date: 20101027
  Serious: Yes (Hospitalization)
  Sender: FDA-Public Use
  Company Number: PHHO2010FR04940

PATIENT

DRUGS (6)
  1. STI571/CGP57148B T35717+CAPS [Suspect]
     Indication: CHRONIC MYELOID LEUKAEMIA
     Dosage: UNK
     Route: 048
     Dates: start: 20080403
  2. CYTARABINE [Suspect]
     Dosage: 28 MG, QD
     Dates: start: 20080413, end: 20090217
  3. ATARAX [Concomitant]
     Dosage: UNK
     Dates: start: 20090821, end: 20090925
  4. AERIUS [Concomitant]
     Dosage: UNK
     Dates: start: 20090521, end: 20090925
  5. DIPROSONE [Concomitant]
     Dosage: UNK
     Dates: start: 20090821, end: 20090929
  6. DERMOVAL [Concomitant]
     Dosage: UNK
     Dates: start: 20090901, end: 20090925

REACTIONS (8)
  - DISORIENTATION [None]
  - FALL [None]
  - GAIT DISTURBANCE [None]
  - HEADACHE [None]
  - INTRACRANIAL PRESSURE INCREASED [None]
  - SUBDURAL HAEMATOMA [None]
  - SUBDURAL HAEMATOMA EVACUATION [None]
  - VOMITING [None]
